FAERS Safety Report 5691743-0 (Version None)
Quarter: 2008Q2

REPORT INFORMATION
  Report Type: 
  Country: None (occurrence: None)
  Receive Date: 20080402
  Receipt Date: 20080327
  Transmission Date: 20081010
  Serious: Yes (Hospitalization, Other)
  Sender: FDA-Public Use
  Company Number: US-ALLERGAN-0803739US

PATIENT
  Sex: Male

DRUGS (2)
  1. BOTOX [Suspect]
     Indication: BENIGN PROSTATIC HYPERPLASIA
     Dosage: UNK, SINGLE
     Route: 050
  2. BOTOX [Suspect]
     Indication: URINARY TRACT DISORDER

REACTIONS (2)
  - PYREXIA [None]
  - SEPSIS [None]
